FAERS Safety Report 16805761 (Version 3)
Quarter: 2019Q4

REPORT INFORMATION
  Report Type: Spontaneous
  Country: US (occurrence: US)
  Receive Date: 20190913
  Receipt Date: 20191115
  Transmission Date: 20200122
  Serious: No
  Sender: FDA-Public Use
  Company Number: US-IPSEN BIOPHARMACEUTICALS, INC.-2019-16673

PATIENT
  Age: 57 Year
  Sex: Female

DRUGS (6)
  1. DYSPORT [Suspect]
     Active Substance: ABOBOTULINUMTOXINA
     Indication: SKIN WRINKLING
  2. DYSPORT [Suspect]
     Active Substance: ABOBOTULINUMTOXINA
     Indication: SKIN WRINKLING
  3. VITAMIN C [Concomitant]
     Active Substance: ASCORBIC ACID
  4. DYSPORT [Suspect]
     Active Substance: ABOBOTULINUMTOXINA
     Indication: OFF LABEL USE
  5. DYSPORT [Suspect]
     Active Substance: ABOBOTULINUMTOXINA
     Indication: SKIN WRINKLING
     Dosage: 8 UNITS INJECTED INTO FOREHEAD (8 UNITS).
     Route: 065
     Dates: start: 20190816, end: 20190816
  6. ATIVAN [Concomitant]
     Active Substance: LORAZEPAM

REACTIONS (10)
  - Diarrhoea [Recovered/Resolved]
  - Off label use [Unknown]
  - Eye swelling [Not Recovered/Not Resolved]
  - Sinusitis [Not Recovered/Not Resolved]
  - Eye discharge [Not Recovered/Not Resolved]
  - Eyelid ptosis [Not Recovered/Not Resolved]
  - Photosensitivity reaction [Recovering/Resolving]
  - Upper-airway cough syndrome [Not Recovered/Not Resolved]
  - Dry eye [Not Recovered/Not Resolved]
  - Blepharospasm [Recovering/Resolving]

NARRATIVE: CASE EVENT DATE: 201908
